FAERS Safety Report 13144172 (Version 1)
Quarter: 2017Q1

REPORT INFORMATION
  Report Type: Spontaneous
  Country: US (occurrence: US)
  Receive Date: 20170124
  Receipt Date: 20170124
  Transmission Date: 20170428
  Serious: Yes (Hospitalization)
  Sender: FDA-Public Use
  Company Number: US-CIPLA LTD.-2017US01005

PATIENT

DRUGS (1)
  1. GABAPENTIN. [Suspect]
     Active Substance: GABAPENTIN
     Indication: PRODUCT USED FOR UNKNOWN INDICATION
     Dosage: 900 MG, QD
     Route: 065

REACTIONS (5)
  - Myoclonus [Recovered/Resolved]
  - Somnolence [Unknown]
  - Toxicity to various agents [Recovered/Resolved]
  - Neurotoxicity [Recovered/Resolved]
  - Treatment noncompliance [Unknown]
